FAERS Safety Report 7076224-4 (Version None)
Quarter: 2010Q4

REPORT INFORMATION
  Report Type: 
  Country: None (occurrence: None)
  Receive Date: 20101101
  Receipt Date: 20101025
  Transmission Date: 20110411
  Serious: Yes (Hospitalization, Other)
  Sender: FDA-Public Use
  Company Number: FR-US-EMD SERONO, INC.-7013504

PATIENT
  Sex: Female
  Weight: 78 kg

DRUGS (9)
  1. REBIF [Suspect]
     Indication: MULTIPLE SCLEROSIS
     Route: 058
     Dates: start: 20100511, end: 20100701
  2. MAGNE-B6 [Concomitant]
     Indication: PRODUCT USED FOR UNKNOWN INDICATION
  3. MIGRALGINE [Concomitant]
     Indication: HEADACHE
  4. LYSANXIA [Concomitant]
     Indication: ANXIETY
  5. ZOLOFT [Concomitant]
     Indication: ANXIETY
  6. MONURIL [Concomitant]
     Indication: VULVOVAGINAL MYCOTIC INFECTION
  7. CALCIBRONAT [Concomitant]
     Indication: PRODUCT USED FOR UNKNOWN INDICATION
  8. NAPROXEN [Concomitant]
     Indication: INJECTION SITE INFLAMMATION
  9. ALPRAZOLAM [Concomitant]
     Indication: PRODUCT USED FOR UNKNOWN INDICATION

REACTIONS (9)
  - ANXIETY [None]
  - DEPRESSION [None]
  - HEADACHE [None]
  - HYPOTENSION [None]
  - INFLUENZA LIKE ILLNESS [None]
  - MUSCLE CONTRACTURE [None]
  - MUSCULOSKELETAL STIFFNESS [None]
  - SUICIDAL IDEATION [None]
  - VERTIGO [None]
